FAERS Safety Report 20150421 (Version 2)
Quarter: 2022Q1

REPORT INFORMATION
  Report Type: Spontaneous
  Country: JP (occurrence: JP)
  Receive Date: 20211206
  Receipt Date: 20220208
  Transmission Date: 20220423
  Serious: Yes (Hospitalization)
  Sender: FDA-Public Use
  Company Number: JP-CHUGAI-A2021008494ROCHE

PATIENT
  Age: 76 Year
  Sex: Female
  Weight: 48 kg

DRUGS (8)
  1. TECENTRIQ [Suspect]
     Active Substance: ATEZOLIZUMAB
     Indication: Small cell lung cancer
     Route: 041
     Dates: start: 20210120, end: 20210120
  2. TECENTRIQ [Suspect]
     Active Substance: ATEZOLIZUMAB
     Route: 041
     Dates: start: 20210217, end: 2021
  3. CARBOPLATIN [Suspect]
     Active Substance: CARBOPLATIN
     Indication: Small cell lung cancer
     Route: 041
     Dates: start: 20210120, end: 20210120
  4. CARBOPLATIN [Suspect]
     Active Substance: CARBOPLATIN
     Dosage: MOST RECENT DOSE OF CARBOPLATIN: 31/MAR/2021
     Route: 041
     Dates: start: 20210217
  5. ETOPOSIDE [Suspect]
     Active Substance: ETOPOSIDE
     Indication: Small cell lung cancer
     Dosage: DOSAGE IS UNCERTAIN.
     Route: 065
     Dates: start: 20210120, end: 20210120
  6. ETOPOSIDE [Suspect]
     Active Substance: ETOPOSIDE
     Dosage: DATE OF MOST RECENT DOSE OF ETOPOSIDE: 31/MAR/2021
     Route: 065
     Dates: start: 20210217
  7. GRANISETRON HYDROCHLORIDE [Concomitant]
     Active Substance: GRANISETRON HYDROCHLORIDE
  8. DEXAMETHASONE SODIUM PHOSPHATE [Concomitant]
     Active Substance: DEXAMETHASONE SODIUM PHOSPHATE
     Dosage: UNK
     Route: 065
     Dates: start: 20210120, end: 20210331

REACTIONS (3)
  - Platelet count decreased [Recovered/Resolved]
  - Febrile neutropenia [Recovered/Resolved]
  - Pulmonary toxicity [Recovering/Resolving]

NARRATIVE: CASE EVENT DATE: 20210202
